FAERS Safety Report 6838596-2 (Version None)
Quarter: 2010Q3

REPORT INFORMATION
  Report Type: 
  Country: None (occurrence: None)
  Receive Date: 20100713
  Receipt Date: 20070615
  Transmission Date: 20110219
  Serious: No
  Sender: FDA-Public Use
  Company Number: US-PFIZER INC-2007051243

PATIENT
  Sex: Female
  Weight: 86.363 kg

DRUGS (5)
  1. CHANTIX [Suspect]
     Indication: SMOKING CESSATION THERAPY
     Dates: start: 20070602, end: 20070614
  2. METFORMIN [Concomitant]
     Indication: DIABETES MELLITUS
  3. ALTACE [Concomitant]
  4. ASACOL [Concomitant]
     Indication: COLITIS
     Dates: start: 20060801
  5. FEMHRT [Concomitant]
     Indication: HOT FLUSH

REACTIONS (3)
  - ABDOMINAL PAIN UPPER [None]
  - DIARRHOEA [None]
  - DIZZINESS [None]
